FAERS Safety Report 10081426 (Version 2)
Quarter: 2014Q2

REPORT INFORMATION
  Report Type: Spontaneous
  Country: US (occurrence: US)
  Receive Date: 20140416
  Receipt Date: 20140416
  Transmission Date: 20141212
  Serious: Yes (Other)
  Sender: FDA-Public Use
  Company Number: CHPA2014US004931

PATIENT
  Age: 7 Year
  Sex: Female

DRUGS (1)
  1. TRIAMINIC NIGHT TIME COLD + COUGH [Suspect]
     Indication: COUGH
     Dosage: 2 TSP, UNK
     Route: 048
     Dates: start: 20140401

REACTIONS (3)
  - Ear infection [Recovered/Resolved]
  - Ear pain [Recovered/Resolved]
  - Sleep disorder [Recovered/Resolved]
